FAERS Safety Report 19197156 (Version 1)
Quarter: 2021Q2

REPORT INFORMATION
  Report Type: Report from Study
  Country: US (occurrence: US)
  Receive Date: 20210430
  Receipt Date: 20210430
  Transmission Date: 20210717
  Serious: Yes (Death, Other)
  Sender: FDA-Public Use
  Company Number: US-CIPLA LTD.-2021US03264

PATIENT

DRUGS (1)
  1. AZACITIDINE. [Suspect]
     Active Substance: AZACITIDINE
     Indication: SIDEROBLASTIC ANAEMIA
     Dosage: UNK
     Route: 065
     Dates: start: 20190410

REACTIONS (2)
  - Fungal infection [Fatal]
  - Neutropenia [Fatal]

NARRATIVE: CASE EVENT DATE: 2019
